FAERS Safety Report 13389045 (Version 1)
Quarter: 2017Q1

REPORT INFORMATION
  Report Type: Report from Study
  Country: GE (occurrence: GE)
  Receive Date: 20170330
  Receipt Date: 20170330
  Transmission Date: 20170429
  Serious: Yes (Other)
  Sender: FDA-Public Use
  Company Number: GE-KADMON PHARMACEUTICALS, LLC-KAD201703-000589

PATIENT
  Age: 41 Year
  Sex: Male

DRUGS (3)
  1. PEGYLATED INTERFERON NOS [Suspect]
     Active Substance: PEGINTERFERON ALFA-2A OR PEGINTERFERON ALFA-2B OR PEGINTERFERON BETA-1A OR PEGINTERFERON LAMBDA-1A
     Indication: HEPATITIS C
  2. RIBAVIRIN. [Suspect]
     Active Substance: RIBAVIRIN
     Indication: HEPATITIS C
  3. TENOFOVIR/EMTRICITABINE/RALTEGRAVIR [Concomitant]
     Indication: HIV INFECTION

REACTIONS (2)
  - Drug effect incomplete [Unknown]
  - Pulmonary tuberculosis [Unknown]
